FAERS Safety Report 11868135 (Version 2)
Quarter: 2016Q1

REPORT INFORMATION
  Report Type: Report from Study
  Country: US (occurrence: US)
  Receive Date: 20151224
  Receipt Date: 20160105
  Transmission Date: 20160526
  Serious: Yes (Hospitalization)
  Sender: FDA-Public Use
  Company Number: US-ACTELION-A-NJ2015-124029

PATIENT
  Age: 44 Year
  Sex: Female

DRUGS (2)
  1. VELETRI [Suspect]
     Active Substance: EPOPROSTENOL
     Indication: PULMONARY HYPERTENSION
     Dosage: 12 NG/KG, PER MIN
     Route: 042
     Dates: start: 20150728
  2. LASIX [Suspect]
     Active Substance: FUROSEMIDE
     Indication: PRODUCT USED FOR UNKNOWN INDICATION
     Route: 065

REACTIONS (10)
  - Device related sepsis [Unknown]
  - Catheter management [Unknown]
  - Pyrexia [Unknown]
  - Hypotension [Unknown]
  - Catheter site infection [Unknown]
  - Dyspnoea [Unknown]
  - Groin abscess [Unknown]
  - Abdominal distension [Unknown]
  - Chills [Unknown]
  - Chest pain [Unknown]

NARRATIVE: CASE EVENT DATE: 20151210
